FAERS Safety Report 14815600 (Version 1)
Quarter: 2018Q2

REPORT INFORMATION
  Report Type: Spontaneous
  Country: US (occurrence: US)
  Receive Date: 20180426
  Receipt Date: 20180426
  Transmission Date: 20180711
  Serious: Yes (Life-Threatening)
  Sender: FDA-Public Use
  Company Number: US-FRESENIUS KABI-FK201804912

PATIENT
  Age: 40 Year
  Sex: Female

DRUGS (7)
  1. CLINDAMYCIN. [Concomitant]
     Active Substance: CLINDAMYCIN
     Indication: PRODUCT USED FOR UNKNOWN INDICATION
     Route: 065
  2. BUPIVACAINE. [Concomitant]
     Active Substance: BUPIVACAINE
     Indication: SPINAL ANAESTHESIA
     Route: 065
  3. ROCURONIUM [Concomitant]
     Active Substance: ROCURONIUM BROMIDE
     Indication: PRODUCT USED FOR UNKNOWN INDICATION
     Route: 065
  4. OXYTOCIN INJECTION (MANUFACTURER UNKNOWN) [Suspect]
     Active Substance: OXYTOCIN
     Indication: PRODUCT USED FOR UNKNOWN INDICATION
     Route: 065
  5. FENTANYL. [Concomitant]
     Active Substance: FENTANYL
     Indication: PRODUCT USED FOR UNKNOWN INDICATION
     Route: 065
  6. MORPHINE [Concomitant]
     Active Substance: MORPHINE
     Indication: SPINAL ANAESTHESIA
     Route: 065
  7. PROPOFOL. [Concomitant]
     Active Substance: PROPOFOL
     Indication: PRODUCT USED FOR UNKNOWN INDICATION
     Route: 065

REACTIONS (1)
  - Anaphylactic reaction [Recovered/Resolved]
